FAERS Safety Report 5811430-5 (Version None)
Quarter: 2008Q3

REPORT INFORMATION
  Report Type: 
  Country: None (occurrence: None)
  Receive Date: 20080716
  Receipt Date: 20080709
  Transmission Date: 20090109
  Serious: Yes (Other)
  Sender: FDA-Public Use
  Company Number: AU-JNJFOC-20080105967

PATIENT
  Age: 14 Year
  Sex: Male

DRUGS (2)
  1. RISPERDAL CONSTA [Suspect]
     Indication: SCHIZOPHRENIA
     Route: 030
  2. RISPERDAL [Suspect]
     Indication: SCHIZOPHRENIA
     Route: 048

REACTIONS (18)
  - ABDOMINAL DISTENSION [None]
  - ABNORMAL BEHAVIOUR [None]
  - AMNESIA [None]
  - ANXIETY [None]
  - DIZZINESS [None]
  - FATIGUE [None]
  - GASTROINTESTINAL INJURY [None]
  - HAEMATOCHEZIA [None]
  - MUSCULOSKELETAL STIFFNESS [None]
  - NAUSEA [None]
  - OEDEMA PERIPHERAL [None]
  - RESTLESS LEGS SYNDROME [None]
  - SKIN DISORDER [None]
  - SKIN STRIAE [None]
  - SWELLING FACE [None]
  - UNEVALUABLE EVENT [None]
  - VISION BLURRED [None]
  - WEIGHT INCREASED [None]
